FAERS Safety Report 18934899 (Version 1)
Quarter: 2021Q1

REPORT INFORMATION
  Report Type: Spontaneous
  Country: IT (occurrence: IT)
  Receive Date: 20210224
  Receipt Date: 20210224
  Transmission Date: 20210420
  Serious: Yes (Other)
  Sender: FDA-Public Use
  Company Number: NVSC2020IT341362

PATIENT
  Age: 67 Year
  Sex: Female

DRUGS (2)
  1. TRITTICO [Suspect]
     Active Substance: TRAZODONE HYDROCHLORIDE
     Indication: MEDICATION ERROR
     Dosage: 10 DRP (1/12 MILLILITRE), TOTAL
     Route: 048
     Dates: start: 20201216, end: 20201216
  2. GABAPENTIN. [Suspect]
     Active Substance: GABAPENTIN
     Indication: MEDICATION ERROR
     Dosage: 4 DF, TOTAL
     Route: 048
     Dates: start: 20201216, end: 20201216

REACTIONS (2)
  - Depressed level of consciousness [Recovered/Resolved]
  - Medication error [Recovered/Resolved]

NARRATIVE: CASE EVENT DATE: 20201216
